FAERS Safety Report 11105315 (Version 1)
Quarter: 2015Q2

REPORT INFORMATION
  Report Type: Spontaneous
  Country: PL (occurrence: PL)
  Receive Date: 20150512
  Receipt Date: 20150512
  Transmission Date: 20150821
  Serious: Yes (Hospitalization)
  Sender: FDA-Public Use
  Company Number: PL-MYLANLABS-2015M1015532

PATIENT

DRUGS (1)
  1. TAMOXIFEN [Suspect]
     Active Substance: TAMOXIFEN
     Indication: SCLEROSING ENCAPSULATING PERITONITIS
     Dosage: UNINTERRUPTED USE FOR MORE THAN 6 YEARS SINCE THE DIAGNOSIS OF EPS
     Route: 065

REACTIONS (4)
  - Vena cava embolism [Unknown]
  - Renal vein embolism [Unknown]
  - Complications of transplanted kidney [Recovering/Resolving]
  - Embolism venous [Unknown]

NARRATIVE: CASE EVENT DATE: 20130204
